FAERS Safety Report 8017374-5 (Version None)
Quarter: 2012Q1

REPORT INFORMATION
  Report Type: 
  Country: None (occurrence: None)
  Receive Date: 20120102
  Receipt Date: 20111209
  Transmission Date: 20120608
  Serious: No
  Sender: FDA-Public Use
  Company Number: US-ROXANE LABORATORIES, INC.-2011-RO-01634RO

PATIENT
  Sex: Male

DRUGS (2)
  1. ROXICET [Suspect]
  2. OXYCODONE HCL AND ACETAMINOPHEN [Suspect]

REACTIONS (1)
  - DRUG INEFFECTIVE [None]
